FAERS Safety Report 12376635 (Version 2)
Quarter: 2016Q2

REPORT INFORMATION
  Report Type: Report from Study
  Country: US (occurrence: US)
  Receive Date: 20160517
  Receipt Date: 20160517
  Transmission Date: 20160815
  Serious: No
  Sender: FDA-Public Use
  Company Number: US-MALLINCKRODT-T201502474

PATIENT
  Sex: Male

DRUGS (2)
  1. PREDNISONE. [Concomitant]
     Active Substance: PREDNISONE
     Dosage: UNK
     Dates: end: 201508
  2. REPOSITORY CORTICOTROPIN INJECTION [Suspect]
     Active Substance: CORTICOTROPIN
     Indication: NEPHROTIC SYNDROME
     Dosage: 80 UNITS 2X A WEEK
     Route: 058
     Dates: start: 20150417

REACTIONS (8)
  - Increased tendency to bruise [Unknown]
  - Irritability [Unknown]
  - Diarrhoea [Recovering/Resolving]
  - Insomnia [Unknown]
  - Swelling [Not Recovered/Not Resolved]
  - Sensitivity of teeth [Unknown]
  - Lacrimation increased [Not Recovered/Not Resolved]
  - Injection site discomfort [Not Recovered/Not Resolved]
